FAERS Safety Report 19491918 (Version 3)
Quarter: 2021Q3

REPORT INFORMATION
  Report Type: Report from Study
  Country: ES (occurrence: ES)
  Receive Date: 20210705
  Receipt Date: 20210804
  Transmission Date: 20211014
  Serious: Yes (Hospitalization)
  Sender: FDA-Public Use
  Company Number: ES-ROCHE-2860588

PATIENT
  Age: 56 Year
  Sex: Male
  Weight: 57 kg

DRUGS (11)
  1. CABOZANTINIB [Suspect]
     Active Substance: CABOZANTINIB
     Indication: RENAL CELL CARCINOMA
     Dosage: THREE 20 MG TABLET?ON 10/JUN/2021, RECEIVED MOST RECENT DOSE OF CABOZANTINIB 60 MG PRIOR TO ADVERSE
     Route: 048
     Dates: start: 20210610
  2. MORPHINE [Concomitant]
     Active Substance: MORPHINE
     Indication: PAIN
     Route: 058
     Dates: start: 20210609
  3. TINZAPARINE SODIQUE [Concomitant]
     Active Substance: TINZAPARIN SODIUM
     Indication: VENOUS THROMBOSIS
     Route: 058
     Dates: start: 20210312
  4. COLCHICINE. [Concomitant]
     Active Substance: COLCHICINE
     Indication: PAIN
     Route: 048
     Dates: start: 20210506
  5. FENTANYL. [Concomitant]
     Active Substance: FENTANYL
     Indication: PAIN
     Dosage: 50 UG
     Route: 062
  6. ATEZOLIZUMAB. [Suspect]
     Active Substance: ATEZOLIZUMAB
     Indication: RENAL CELL CARCINOMA
     Dosage: ON 10/JUN/2021, RECEIVED LAST DOSE OF ATEZOLIZUMAB 1200 MG PRIOR TO SERIOUS ADVERSE EVENT
     Route: 042
     Dates: start: 20210610
  7. METAMIZOLE [Concomitant]
     Active Substance: METAMIZOLE
     Indication: PAIN
     Route: 048
     Dates: start: 20210506
  8. OMEPRAZOLE. [Concomitant]
     Active Substance: OMEPRAZOLE
     Indication: DYSPEPSIA
     Route: 048
     Dates: start: 20210313
  9. PARACETAMOL [Concomitant]
     Active Substance: ACETAMINOPHEN
     Indication: PAIN
     Route: 048
     Dates: start: 20210409
  10. PREGABALINE [Concomitant]
     Active Substance: PREGABALIN
     Indication: ANXIETY
     Route: 048
     Dates: start: 20210201
  11. TRAZODONE [Concomitant]
     Active Substance: TRAZODONE HYDROCHLORIDE
     Indication: DEPRESSION
     Route: 048
     Dates: start: 20210312

REACTIONS (2)
  - Gait disturbance [Recovered/Resolved]
  - Nervous system disorder [Recovered/Resolved]

NARRATIVE: CASE EVENT DATE: 20210625
